FAERS Safety Report 8482357-8 (Version None)
Quarter: 2012Q3

REPORT INFORMATION
  Report Type: 
  Country: None (occurrence: None)
  Receive Date: 20120702
  Receipt Date: 20120611
  Transmission Date: 20120928
  Serious: Yes (Other)
  Sender: FDA-Public Use
  Company Number: US-JNJFOC-20120608075

PATIENT
  Sex: Female

DRUGS (1)
  1. BENADRYL [Suspect]
     Indication: PRODUCT USED FOR UNKNOWN INDICATION
     Route: 065

REACTIONS (3)
  - ULCER [None]
  - CROHN'S DISEASE [None]
  - MUSCLE CONTRACTIONS INVOLUNTARY [None]
